FAERS Safety Report 7032430-6 (Version None)
Quarter: 2010Q4

REPORT INFORMATION
  Report Type: 
  Country: None (occurrence: None)
  Receive Date: 20101007
  Receipt Date: 20100928
  Transmission Date: 20110411
  Serious: Yes (Other)
  Sender: FDA-Public Use
  Company Number: JM-JNJFOC-20101001405

PATIENT
  Age: 25 Year
  Sex: Female
  Weight: 73.1 kg

DRUGS (3)
  1. HALDOL [Suspect]
     Indication: BIPOLAR DISORDER
     Route: 065
  2. LITHIUM CARBONATE [Suspect]
     Indication: BIPOLAR DISORDER
     Route: 065
  3. COGENTIN [Suspect]
     Indication: BIPOLAR DISORDER
     Route: 065

REACTIONS (3)
  - DRUG EXPOSURE DURING PREGNANCY [None]
  - LIPIDS DECREASED [None]
  - PLACENTAL DISORDER [None]
